FAERS Safety Report 15214217 (Version 1)
Quarter: 2018Q3

REPORT INFORMATION
  Report Type: Spontaneous
  Country: US (occurrence: US)
  Receive Date: 20180702
  Receipt Date: 20180702
  Transmission Date: 20181010
  Serious: No
  Sender: FDA-Public Use
  Company Number: None

PATIENT
  Age: 28 Year
  Sex: Female

DRUGS (1)
  1. BUPRENORPHINE?NALOXONE 8?2MG TAB [Suspect]
     Active Substance: BUPRENORPHINE\NALOXONE
     Indication: DRUG DEPENDENCE
     Dosage: ?          OTHER DOSE:8?2 MG;?
     Route: 060
     Dates: start: 20180331, end: 20180702

REACTIONS (3)
  - Nausea [None]
  - Loss of personal independence in daily activities [None]
  - Somnolence [None]
